FAERS Safety Report 10038865 (Version 1)
Quarter: 2014Q1

REPORT INFORMATION
  Report Type: Spontaneous
  Country: IT (occurrence: IT)
  Receive Date: 20140326
  Receipt Date: 20140326
  Transmission Date: 20141002
  Serious: Yes (Other)
  Sender: FDA-Public Use
  Company Number: IT-VERTEX PHARMACEUTICALS INC-2014-001462

PATIENT
  Age: 49 Year
  Sex: Male
  Weight: 83 kg

DRUGS (3)
  1. INCIVO [Suspect]
     Indication: ANTIVIRAL TREATMENT
     Route: 048
     Dates: start: 20131015, end: 20140107
  2. PEGASYS [Interacting]
     Indication: ANTIVIRAL TREATMENT
     Route: 058
     Dates: start: 20130906, end: 20140225
  3. COPEGUS [Concomitant]
     Indication: ANTIVIRAL TREATMENT
     Dosage: DOSAGE FORM: COATED TABLET
     Route: 048
     Dates: start: 20130906, end: 20140225

REACTIONS (3)
  - Depression [Recovered/Resolved]
  - Drug interaction [Recovered/Resolved]
  - Irritability [Recovered/Resolved]
